FAERS Safety Report 25926375 (Version 1)
Quarter: 2025Q4

REPORT INFORMATION
  Report Type: Spontaneous
  Country: US (occurrence: US)
  Receive Date: 20251015
  Receipt Date: 20251015
  Transmission Date: 20260117
  Serious: No
  Sender: BRISTOL-MYERS SQUIBB COMPANY
  Company Number: US-BRISTOL-MYERS SQUIBB COMPANY-2025-139251

PATIENT
  Age: 82 Year
  Sex: Female

DRUGS (1)
  1. ORENCIA [Suspect]
     Active Substance: ABATACEPT
     Indication: Rheumatoid arthritis
     Dates: start: 20250903

REACTIONS (5)
  - Device use error [Unknown]
  - Incorrect dose administered by device [Unknown]
  - Device delivery system issue [Unknown]
  - Muscular weakness [Unknown]
  - Injury associated with device [Unknown]

NARRATIVE: CASE EVENT DATE: 20251008
